FAERS Safety Report 22002119 (Version 1)
Quarter: 2023Q1

REPORT INFORMATION
  Report Type: Spontaneous
  Country: BR (occurrence: BR)
  Receive Date: 20230216
  Receipt Date: 20230216
  Transmission Date: 20230418
  Serious: Yes (Other)
  Sender: FDA-Public Use
  Company Number: BR-BRISTOL-MYERS SQUIBB COMPANY-2023-019098

PATIENT

DRUGS (3)
  1. DEXAMETHASONE [Suspect]
     Active Substance: DEXAMETHASONE
     Indication: Product used for unknown indication
     Dosage: 6 CYCLES, WEEKLY (40 MG,1 IN 1 WK)
     Route: 048
     Dates: start: 20200603, end: 20201118
  2. THALIDOMIDE [Suspect]
     Active Substance: THALIDOMIDE
     Indication: Product used for unknown indication
     Dosage: 6 CYCLES, 28/28 DAYS (100 MG,1 IN 1 D)
     Dates: start: 20200603, end: 20201118
  3. BORTEZOMIB [Suspect]
     Active Substance: BORTEZOMIB
     Indication: Product used for unknown indication
     Dosage: 6 CYCLES (1.4 MG/M2,1 IN 1 WK)
     Dates: start: 20200603, end: 20201118

REACTIONS (2)
  - Plasmacytoma [Unknown]
  - Condition aggravated [Unknown]

NARRATIVE: CASE EVENT DATE: 20210110
